FAERS Safety Report 6683528-3 (Version None)
Quarter: 2010Q2

REPORT INFORMATION
  Report Type: 
  Country: None (occurrence: None)
  Receive Date: 20100415
  Receipt Date: 20100412
  Transmission Date: 20101027
  Serious: Yes (Other)
  Sender: FDA-Public Use
  Company Number: GB-MERCK-1004GBR00026

PATIENT
  Age: 68 Year
  Sex: Female

DRUGS (3)
  1. ZETIA [Suspect]
     Route: 048
     Dates: start: 20040101
  2. PERINDOPRIL [Suspect]
     Route: 065
     Dates: start: 20040101
  3. AMIAS [Suspect]
     Route: 065
     Dates: start: 20040101

REACTIONS (2)
  - BULBAR PALSY [None]
  - CHEILITIS [None]
